FAERS Safety Report 24915359 (Version 4)
Quarter: 2025Q3

REPORT INFORMATION
  Report Type: Spontaneous
  Country: CA (occurrence: CA)
  Receive Date: 20250203
  Receipt Date: 20250909
  Transmission Date: 20251020
  Serious: Yes (Death, Other)
  Sender: TAKEDA
  Company Number: CA-TAKEDA-2025TUS010822

PATIENT
  Sex: Female

DRUGS (183)
  1. ENTYVIO [Suspect]
     Active Substance: VEDOLIZUMAB
     Indication: Product used for unknown indication
  2. MESALAMINE [Suspect]
     Active Substance: MESALAMINE
     Indication: Product used for unknown indication
  3. METHOTREXATE [Suspect]
     Active Substance: METHOTREXATE
     Indication: Product used for unknown indication
     Dosage: 20 MILLIGRAM, QD
  4. METHOTREXATE [Suspect]
     Active Substance: METHOTREXATE
     Dosage: 20 MILLIGRAM, QD
  5. METHOTREXATE [Suspect]
     Active Substance: METHOTREXATE
  6. METHOTREXATE [Suspect]
     Active Substance: METHOTREXATE
  7. METHOTREXATE [Suspect]
     Active Substance: METHOTREXATE
  8. METHOTREXATE [Suspect]
     Active Substance: METHOTREXATE
  9. METHOTREXATE [Suspect]
     Active Substance: METHOTREXATE
     Dosage: 15 MILLIGRAM, QD
  10. METHOTREXATE [Suspect]
     Active Substance: METHOTREXATE
  11. METHOTREXATE [Suspect]
     Active Substance: METHOTREXATE
  12. METHOTREXATE [Suspect]
     Active Substance: METHOTREXATE
  13. METHOTREXATE [Suspect]
     Active Substance: METHOTREXATE
  14. METHOTREXATE [Suspect]
     Active Substance: METHOTREXATE
     Dosage: 25 MILLIGRAM, QD
  15. METHOTREXATE [Suspect]
     Active Substance: METHOTREXATE
  16. METHOTREXATE [Suspect]
     Active Substance: METHOTREXATE
  17. METHOTREXATE [Suspect]
     Active Substance: METHOTREXATE
  18. ACETAMINOPHEN [Suspect]
     Active Substance: ACETAMINOPHEN
     Indication: Product used for unknown indication
  19. ACETAMINOPHEN [Suspect]
     Active Substance: ACETAMINOPHEN
  20. CALCIUM [Suspect]
     Active Substance: CALCIUM
     Indication: Product used for unknown indication
  21. CALCIUM CARBONATE [Suspect]
     Active Substance: CALCIUM CARBONATE
     Indication: Product used for unknown indication
  22. PREDNISONE [Suspect]
     Active Substance: PREDNISONE
     Indication: Product used for unknown indication
  23. PREDNISONE [Suspect]
     Active Substance: PREDNISONE
  24. PREDNISONE [Suspect]
     Active Substance: PREDNISONE
  25. PREDNISONE [Suspect]
     Active Substance: PREDNISONE
  26. PREDNISONE [Suspect]
     Active Substance: PREDNISONE
  27. PREDNISONE [Suspect]
     Active Substance: PREDNISONE
  28. HYRIMOZ [Suspect]
     Active Substance: ADALIMUMAB-ADAZ
     Indication: Product used for unknown indication
  29. HYRIMOZ [Suspect]
     Active Substance: ADALIMUMAB-ADAZ
  30. HYRIMOZ [Suspect]
     Active Substance: ADALIMUMAB-ADAZ
  31. PANTOPRAZOLE SODIUM ANHYDROUS [Suspect]
     Active Substance: PANTOPRAZOLE SODIUM ANHYDROUS
     Indication: Product used for unknown indication
  32. ALENDRONATE SODIUM [Suspect]
     Active Substance: ALENDRONATE SODIUM
     Indication: Product used for unknown indication
  33. APREMILAST [Suspect]
     Active Substance: APREMILAST
     Indication: Product used for unknown indication
     Dosage: 6 MILLIGRAM, QD
  34. AZATHIOPRINE [Suspect]
     Active Substance: AZATHIOPRINE
     Indication: Product used for unknown indication
  35. CALCIUM CITRATE [Suspect]
     Active Substance: CALCIUM CITRATE
     Indication: Product used for unknown indication
  36. CALCIUM GLUBIONATE [Suspect]
     Active Substance: CALCIUM GLUBIONATE
     Indication: Product used for unknown indication
  37. CELECOXIB [Suspect]
     Active Substance: CELECOXIB
     Indication: Product used for unknown indication
     Dosage: 200 MILLIGRAM, QD
  38. CELECOXIB [Suspect]
     Active Substance: CELECOXIB
     Dosage: UNK UNK, QD
  39. CELECOXIB [Suspect]
     Active Substance: CELECOXIB
     Dosage: UNK UNK, QD
  40. CELECOXIB [Suspect]
     Active Substance: CELECOXIB
  41. CETIRIZINE HYDROCHLORIDE [Suspect]
     Active Substance: CETIRIZINE HYDROCHLORIDE
     Indication: Product used for unknown indication
  42. CETIRIZINE HYDROCHLORIDE [Suspect]
     Active Substance: CETIRIZINE HYDROCHLORIDE
     Dosage: 10 MILLIGRAM, QD
  43. CETIRIZINE HYDROCHLORIDE [Suspect]
     Active Substance: CETIRIZINE HYDROCHLORIDE
  44. CETIRIZINE HYDROCHLORIDE [Suspect]
     Active Substance: CETIRIZINE HYDROCHLORIDE
  45. CHLORHEXIDINE GLUCONATE [Suspect]
     Active Substance: CHLORHEXIDINE GLUCONATE
     Indication: Product used for unknown indication
  46. CHLORHEXIDINE GLUCONATE\ISOPROPYL ALCOHOL [Suspect]
     Active Substance: CHLORHEXIDINE GLUCONATE\ISOPROPYL ALCOHOL
     Indication: Product used for unknown indication
  47. CHLORHEXIDINE GLUCONATE\ISOPROPYL ALCOHOL [Suspect]
     Active Substance: CHLORHEXIDINE GLUCONATE\ISOPROPYL ALCOHOL
  48. CIMZIA [Suspect]
     Active Substance: CERTOLIZUMAB PEGOL
     Indication: Product used for unknown indication
  49. CIMZIA [Suspect]
     Active Substance: CERTOLIZUMAB PEGOL
     Dosage: UNK UNK, QD
  50. CIMZIA [Suspect]
     Active Substance: CERTOLIZUMAB PEGOL
  51. CLONIDINE HYDROCHLORIDE [Suspect]
     Active Substance: CLONIDINE HYDROCHLORIDE
     Indication: Product used for unknown indication
  52. HYDROCORTISONE ACETATE [Suspect]
     Active Substance: HYDROCORTISONE ACETATE
     Indication: Product used for unknown indication
  53. CORTISONE ACETATE [Suspect]
     Active Substance: CORTISONE ACETATE
     Indication: Product used for unknown indication
  54. CORTISONE ACETATE [Suspect]
     Active Substance: CORTISONE ACETATE
  55. DESOXIMETASONE [Suspect]
     Active Substance: DESOXIMETASONE
     Indication: Product used for unknown indication
  56. DESOXIMETASONE [Suspect]
     Active Substance: DESOXIMETASONE
  57. DESOXIMETASONE [Suspect]
     Active Substance: DESOXIMETASONE
  58. DESOXIMETASONE [Suspect]
     Active Substance: DESOXIMETASONE
  59. DICLOFENAC POTASSIUM [Suspect]
     Active Substance: DICLOFENAC POTASSIUM
     Indication: Product used for unknown indication
  60. DICLOFENAC POTASSIUM [Suspect]
     Active Substance: DICLOFENAC POTASSIUM
  61. DICLOFENAC POTASSIUM [Suspect]
     Active Substance: DICLOFENAC POTASSIUM
  62. DICLOFENAC POTASSIUM [Suspect]
     Active Substance: DICLOFENAC POTASSIUM
  63. DICLOFENAC POTASSIUM [Suspect]
     Active Substance: DICLOFENAC POTASSIUM
  64. DICLOFENAC POTASSIUM [Suspect]
     Active Substance: DICLOFENAC POTASSIUM
     Dosage: 50 MILLIGRAM, QD
  65. DICLOFENAC SODIUM [Suspect]
     Active Substance: DICLOFENAC SODIUM
     Indication: Product used for unknown indication
  66. DICLOFENAC SODIUM [Suspect]
     Active Substance: DICLOFENAC SODIUM
  67. DILTIAZEM [Suspect]
     Active Substance: DILTIAZEM
     Indication: Product used for unknown indication
  68. DIPHENHYDRAMINE HYDROCHLORIDE [Suspect]
     Active Substance: DIPHENHYDRAMINE HYDROCHLORIDE
     Indication: Product used for unknown indication
  69. DOXYCYCLINE HYCLATE [Suspect]
     Active Substance: DOXYCYCLINE HYCLATE
     Indication: Product used for unknown indication
  70. ENBREL [Suspect]
     Active Substance: ETANERCEPT
     Indication: Product used for unknown indication
     Dosage: 50 MILLIGRAM, 1/WEEK
  71. ENBREL [Suspect]
     Active Substance: ETANERCEPT
     Dosage: 20 MILLIGRAM, 1/WEEK
  72. ENBREL [Suspect]
     Active Substance: ETANERCEPT
     Dosage: 20 MILLIGRAM, QD
  73. ENBREL [Suspect]
     Active Substance: ETANERCEPT
  74. ERELZI [Suspect]
     Active Substance: ETANERCEPT-SZZS
     Indication: Product used for unknown indication
  75. ERELZI [Suspect]
     Active Substance: ETANERCEPT-SZZS
  76. FOLIC ACID [Suspect]
     Active Substance: FOLIC ACID
     Indication: Product used for unknown indication
  77. FOLIC ACID [Suspect]
     Active Substance: FOLIC ACID
  78. FOLIC ACID [Suspect]
     Active Substance: FOLIC ACID
  79. FOLIC ACID [Suspect]
     Active Substance: FOLIC ACID
  80. FOLIC ACID [Suspect]
     Active Substance: FOLIC ACID
  81. FOLIC ACID [Suspect]
     Active Substance: FOLIC ACID
  82. FOLIC ACID [Suspect]
     Active Substance: FOLIC ACID
  83. FOLIC ACID [Suspect]
     Active Substance: FOLIC ACID
  84. FOLIC ACID [Suspect]
     Active Substance: FOLIC ACID
     Dosage: 1 MILLIGRAM, QD
  85. FOLIC ACID [Suspect]
     Active Substance: FOLIC ACID
  86. FRAMYCETIN SULFATE [Suspect]
     Active Substance: FRAMYCETIN SULFATE
     Indication: Product used for unknown indication
  87. GRAMICIDIN [Suspect]
     Active Substance: GRAMICIDIN
     Indication: Product used for unknown indication
  88. HUMIRA [Suspect]
     Active Substance: ADALIMUMAB
     Indication: Product used for unknown indication
  89. HUMIRA [Suspect]
     Active Substance: ADALIMUMAB
  90. HUMIRA [Suspect]
     Active Substance: ADALIMUMAB
  91. HUMIRA [Suspect]
     Active Substance: ADALIMUMAB
  92. HYDROCORTISONE SODIUM SUCCINATE [Suspect]
     Active Substance: HYDROCORTISONE SODIUM SUCCINATE
     Indication: Product used for unknown indication
  93. HYDROCORTISONE SODIUM SUCCINATE [Suspect]
     Active Substance: HYDROCORTISONE SODIUM SUCCINATE
  94. HYDROCORTISONE SODIUM SUCCINATE [Suspect]
     Active Substance: HYDROCORTISONE SODIUM SUCCINATE
  95. HYDROXYCHLOROQUINE [Suspect]
     Active Substance: HYDROXYCHLOROQUINE
     Indication: Product used for unknown indication
     Dosage: 40 MILLIGRAM, QD
  96. HYDROXYCHLOROQUINE [Suspect]
     Active Substance: HYDROXYCHLOROQUINE
     Dosage: 400 MILLIGRAM, QD
  97. HYDROXYCHLOROQUINE [Suspect]
     Active Substance: HYDROXYCHLOROQUINE
  98. HYDROXYCHLOROQUINE [Suspect]
     Active Substance: HYDROXYCHLOROQUINE
     Dosage: 5 MILLIGRAM, QD
  99. HYDROXYCHLOROQUINE SULFATE [Suspect]
     Active Substance: HYDROXYCHLOROQUINE SULFATE
     Indication: Product used for unknown indication
  100. HYDROXYCHLOROQUINE SULFATE [Suspect]
     Active Substance: HYDROXYCHLOROQUINE SULFATE
     Dosage: 400 MILLIGRAM, QD
  101. HYDROXYCHLOROQUINE SULFATE [Suspect]
     Active Substance: HYDROXYCHLOROQUINE SULFATE
     Dosage: 40 MILLIGRAM, QD
  102. HYDROXYCHLOROQUINE SULFATE [Suspect]
     Active Substance: HYDROXYCHLOROQUINE SULFATE
  103. HYDROXYCHLOROQUINE SULFATE [Suspect]
     Active Substance: HYDROXYCHLOROQUINE SULFATE
  104. HYDROXYCHLOROQUINE SULFATE [Suspect]
     Active Substance: HYDROXYCHLOROQUINE SULFATE
     Dosage: 4000 MILLIGRAM, QD
  105. HYDROXYCHLOROQUINE SULFATE [Suspect]
     Active Substance: HYDROXYCHLOROQUINE SULFATE
     Dosage: 400 MILLIGRAM, QD
  106. ISOPROPYL ALCOHOL [Suspect]
     Active Substance: ISOPROPYL ALCOHOL
     Indication: Product used for unknown indication
  107. LYRICA [Suspect]
     Active Substance: PREGABALIN
     Indication: Product used for unknown indication
  108. METHYLPREDNISOLONE SODIUM SUCCINATE [Suspect]
     Active Substance: METHYLPREDNISOLONE SODIUM SUCCINATE
     Indication: Product used for unknown indication
  109. MORPHINE SULFATE [Suspect]
     Active Substance: MORPHINE SULFATE
     Indication: Product used for unknown indication
  110. MYCOPHENOLATE MOFETIL [Suspect]
     Active Substance: MYCOPHENOLATE MOFETIL
     Indication: Product used for unknown indication
  111. NAPROXEN [Suspect]
     Active Substance: NAPROXEN
     Indication: Product used for unknown indication
     Dosage: 1000 MILLIGRAM, QD
  112. NITROFURAZONE [Suspect]
     Active Substance: NITROFURAZONE
     Indication: Product used for unknown indication
  113. NITROFURAZONE [Suspect]
     Active Substance: NITROFURAZONE
  114. ORENCIA [Suspect]
     Active Substance: ABATACEPT
     Indication: Product used for unknown indication
  115. ORENCIA [Suspect]
     Active Substance: ABATACEPT
  116. ORENCIA [Suspect]
     Active Substance: ABATACEPT
  117. ORENCIA [Suspect]
     Active Substance: ABATACEPT
  118. ORENCIA [Suspect]
     Active Substance: ABATACEPT
     Dosage: 125 MILLIGRAM, 1/WEEK
  119. ORENCIA [Suspect]
     Active Substance: ABATACEPT
     Dosage: 18 MILLIGRAM, QD
  120. ORENCIA [Suspect]
     Active Substance: ABATACEPT
  121. ORENCIA [Suspect]
     Active Substance: ABATACEPT
  122. ORENCIA [Suspect]
     Active Substance: ABATACEPT
  123. ORENCIA [Suspect]
     Active Substance: ABATACEPT
  124. ORENCIA [Suspect]
     Active Substance: ABATACEPT
     Dosage: 17.88 MILLIGRAM, QD
  125. ORENCIA [Suspect]
     Active Substance: ABATACEPT
     Dosage: 17.86 MILLIGRAM, QD
  126. OTEZLA [Suspect]
     Active Substance: APREMILAST
     Indication: Product used for unknown indication
     Dosage: 6 MILLIGRAM, QD
  127. OTEZLA [Suspect]
     Active Substance: APREMILAST
  128. OTEZLA [Suspect]
     Active Substance: APREMILAST
     Dosage: 6 MILLIGRAM, QD
  129. OTEZLA [Suspect]
     Active Substance: APREMILAST
     Dosage: 3 MILLIGRAM, QD
  130. OXYCODONE [Suspect]
     Active Substance: OXYCODONE
     Indication: Product used for unknown indication
  131. OXYCODONE TEREPHTHALATE [Suspect]
     Active Substance: OXYCODONE TEREPHTHALATE
     Indication: Product used for unknown indication
  132. PARA-AMINOSALICYLIC ACID [Suspect]
     Active Substance: AMINOSALICYLIC ACID
     Indication: Product used for unknown indication
  133. PHTHALYLSULFATHIAZOLE [Suspect]
     Active Substance: PHTHALYLSULFATHIAZOLE
     Indication: Product used for unknown indication
     Dosage: 400 MILLIGRAM, QD
  134. PHTHALYLSULFATHIAZOLE [Suspect]
     Active Substance: PHTHALYLSULFATHIAZOLE
     Dosage: 2000 MILLIGRAM, QD
  135. PHTHALYLSULFATHIAZOLE [Suspect]
     Active Substance: PHTHALYLSULFATHIAZOLE
     Dosage: 1000 MILLIGRAM, QD
  136. PHTHALYLSULFATHIAZOLE [Suspect]
     Active Substance: PHTHALYLSULFATHIAZOLE
  137. PHTHALYLSULFATHIAZOLE [Suspect]
     Active Substance: PHTHALYLSULFATHIAZOLE
  138. PHTHALYLSULFATHIAZOLE [Suspect]
     Active Substance: PHTHALYLSULFATHIAZOLE
     Dosage: 2000 MILLIGRAM, QD
  139. PHTHALYLSULFATHIAZOLE [Suspect]
     Active Substance: PHTHALYLSULFATHIAZOLE
  140. PSEUDOEPHEDRINE HYDROCHLORIDE [Suspect]
     Active Substance: PSEUDOEPHEDRINE HYDROCHLORIDE
     Indication: Product used for unknown indication
  141. QUETIAPINE FUMARATE [Suspect]
     Active Substance: QUETIAPINE FUMARATE
     Indication: Product used for unknown indication
  142. REMICADE [Suspect]
     Active Substance: INFLIXIMAB
     Indication: Product used for unknown indication
  143. REMICADE [Suspect]
     Active Substance: INFLIXIMAB
  144. SALICYLIC ACID [Suspect]
     Active Substance: SALICYLIC ACID
     Indication: Product used for unknown indication
  145. SIMPONI [Suspect]
     Active Substance: GOLIMUMAB
     Indication: Product used for unknown indication
  146. SODIUM FLUORIDE [Suspect]
     Active Substance: SODIUM FLUORIDE
     Indication: Product used for unknown indication
  147. STELARA [Suspect]
     Active Substance: USTEKINUMAB
     Indication: Product used for unknown indication
  148. SULFAMETHOXAZOLE\TRIMETHOPRIM [Suspect]
     Active Substance: SULFAMETHOXAZOLE\TRIMETHOPRIM
     Indication: Product used for unknown indication
  149. SULFASALAZINE [Suspect]
     Active Substance: SULFASALAZINE
     Indication: Product used for unknown indication
  150. SULFASALAZINE [Suspect]
     Active Substance: SULFASALAZINE
  151. SULFASALAZINE [Suspect]
     Active Substance: SULFASALAZINE
  152. SULFASALAZINE [Suspect]
     Active Substance: SULFASALAZINE
  153. SULFASALAZINE [Suspect]
     Active Substance: SULFASALAZINE
  154. SULFASALAZINE [Suspect]
     Active Substance: SULFASALAZINE
  155. SULFASALAZINE [Suspect]
     Active Substance: SULFASALAZINE
  156. THYMOL [Suspect]
     Active Substance: THYMOL
     Indication: Product used for unknown indication
  157. THYMOL [Suspect]
     Active Substance: THYMOL
  158. THYMOL [Suspect]
     Active Substance: THYMOL
  159. TOCILIZUMAB [Suspect]
     Active Substance: TOCILIZUMAB
     Indication: Product used for unknown indication
  160. TOCILIZUMAB [Suspect]
     Active Substance: TOCILIZUMAB
     Dosage: 752 MILLIGRAM, 1/WEEK
  161. TOCILIZUMAB [Suspect]
     Active Substance: TOCILIZUMAB
  162. TOCILIZUMAB [Suspect]
     Active Substance: TOCILIZUMAB
  163. TOCILIZUMAB [Suspect]
     Active Substance: TOCILIZUMAB
  164. TOCILIZUMAB [Suspect]
     Active Substance: TOCILIZUMAB
  165. TOCILIZUMAB [Suspect]
     Active Substance: TOCILIZUMAB
  166. TOCILIZUMAB [Suspect]
     Active Substance: TOCILIZUMAB
  167. TOCILIZUMAB [Suspect]
     Active Substance: TOCILIZUMAB
  168. TOCILIZUMAB [Suspect]
     Active Substance: TOCILIZUMAB
  169. TOCILIZUMAB [Suspect]
     Active Substance: TOCILIZUMAB
  170. TOCILIZUMAB [Suspect]
     Active Substance: TOCILIZUMAB
  171. TOFACITINIB CITRATE [Suspect]
     Active Substance: TOFACITINIB CITRATE
     Indication: Product used for unknown indication
     Dosage: 10 MILLIGRAM, QD
  172. TRAMADOL HYDROCHLORIDE [Suspect]
     Active Substance: TRAMADOL HYDROCHLORIDE
     Indication: Product used for unknown indication
  173. TRIAMCINOLONE ACETONIDE [Suspect]
     Active Substance: TRIAMCINOLONE ACETONIDE
     Indication: Product used for unknown indication
  174. TRICLOSAN [Suspect]
     Active Substance: TRICLOSAN
     Indication: Product used for unknown indication
  175. TYROTHRICIN [Suspect]
     Active Substance: TYROTHRICIN
     Indication: Product used for unknown indication
  176. TYROTHRICIN [Suspect]
     Active Substance: TYROTHRICIN
  177. VITAMIN D3 [Suspect]
     Active Substance: CHOLECALCIFEROL
     Indication: Product used for unknown indication
  178. VITAMIN D3 [Suspect]
     Active Substance: CHOLECALCIFEROL
  179. VITAMIN D3 [Suspect]
     Active Substance: CHOLECALCIFEROL
  180. XELJANZ [Suspect]
     Active Substance: TOFACITINIB CITRATE
     Indication: Product used for unknown indication
  181. XELJANZ [Suspect]
     Active Substance: TOFACITINIB CITRATE
     Dosage: 10 MILLIGRAM, QD
  182. SULFATRIM [Suspect]
     Active Substance: SULFAMETHOXAZOLE\TRIMETHOPRIM
     Indication: Product used for unknown indication
  183. CORTISONE [Suspect]
     Active Substance: CORTISONE
     Indication: Product used for unknown indication

REACTIONS (12)
  - Type 2 diabetes mellitus [Fatal]
  - Visual impairment [Fatal]
  - Walking aid user [Fatal]
  - Weight increased [Fatal]
  - Weight decreased [Fatal]
  - Wheezing [Fatal]
  - Wound [Fatal]
  - Wound infection [Fatal]
  - Urticaria [Fatal]
  - Vomiting [Fatal]
  - Upper respiratory tract infection [Fatal]
  - Prescribed underdose [Unknown]
